FAERS Safety Report 11709776 (Version 2)
Quarter: 2015Q4

REPORT INFORMATION
  Report Type: Spontaneous
  Country: US (occurrence: US)
  Receive Date: 20151104
  Receipt Date: 20151110
  Transmission Date: 20160304
  Serious: No
  Sender: FDA-Public Use
  Company Number: US-ELI_LILLY_AND_COMPANY-US201108004145

PATIENT
  Sex: Female
  Weight: 71.2 kg

DRUGS (4)
  1. EVISTA [Concomitant]
     Active Substance: RALOXIFENE HYDROCHLORIDE
     Dosage: UNK, UNKNOWN
     Route: 065
  2. VITAMIN D [Concomitant]
     Active Substance: CHOLECALCIFEROL
     Dosage: 50000 IU, UNKNOWN
     Route: 065
  3. FORTEO [Suspect]
     Active Substance: TERIPARATIDE
     Indication: BONE DISORDER
     Dosage: 20 UG, QD
     Route: 058
     Dates: start: 201010, end: 201106
  4. CALCIUM [Concomitant]
     Active Substance: CALCIUM
     Dosage: 500 MG, TID

REACTIONS (2)
  - Drug ineffective [Unknown]
  - Off label use [Unknown]
